FAERS Safety Report 12235627 (Version 2)
Quarter: 2016Q2

REPORT INFORMATION
  Report Type: Spontaneous
  Country: IN (occurrence: IN)
  Receive Date: 20160404
  Receipt Date: 20160407
  Transmission Date: 20160815
  Serious: Yes (Hospitalization, Other)
  Sender: FDA-Public Use
  Company Number: IN-SA-2016SA061664

PATIENT
  Age: 56 Year
  Sex: Male

DRUGS (6)
  1. FLUOROURACIL. [Concomitant]
     Active Substance: FLUOROURACIL
     Indication: COLORECTAL CANCER METASTATIC
  2. OXALIPLATIN. [Suspect]
     Active Substance: OXALIPLATIN
     Indication: COLORECTAL CANCER METASTATIC
     Route: 065
     Dates: start: 200902, end: 200910
  3. OXALIPLATIN. [Suspect]
     Active Substance: OXALIPLATIN
     Indication: COLORECTAL CANCER METASTATIC
     Dosage: INFUSION
     Route: 065
     Dates: start: 20101109
  4. LEUCOVORIN. [Concomitant]
     Active Substance: LEUCOVORIN
     Indication: COLORECTAL CANCER METASTATIC
  5. OXALIPLATIN. [Suspect]
     Active Substance: OXALIPLATIN
     Indication: COLORECTAL CANCER METASTATIC
     Dosage: INFUSION
     Route: 065
     Dates: start: 20101130
  6. CAPECITABINE. [Concomitant]
     Active Substance: CAPECITABINE
     Indication: COLORECTAL CANCER METASTATIC

REACTIONS (13)
  - Blood bilirubin unconjugated increased [Recovered/Resolved]
  - Renal tubular necrosis [Recovered/Resolved]
  - Oliguria [Recovered/Resolved]
  - Back pain [Recovered/Resolved]
  - Acute kidney injury [Recovered/Resolved]
  - Haemoglobin decreased [Recovered/Resolved]
  - Blood bilirubin increased [Recovered/Resolved]
  - Red blood cells urine positive [Recovered/Resolved]
  - Albumin urine present [Recovering/Resolving]
  - Intravascular haemolysis [Recovered/Resolved]
  - Blood urea increased [Recovered/Resolved]
  - Haematuria [Recovered/Resolved]
  - Blood creatinine increased [Recovered/Resolved]

NARRATIVE: CASE EVENT DATE: 2010
